FAERS Safety Report 7218163-1 (Version None)
Quarter: 2010Q4

REPORT INFORMATION
  Report Type: 
  Country: None (occurrence: None)
  Receive Date: 20101230
  Receipt Date: 20090513
  Transmission Date: 20110411
  Serious: Yes (Other)
  Sender: FDA-Public Use
  Company Number: 09-AUR-09953

PATIENT
  Age: 75 Year
  Sex: Female

DRUGS (9)
  1. AMOXICILLIN [Suspect]
     Indication: LOWER RESPIRATORY TRACT INFECTION
     Dosage: 250MG TID - ORAL
     Route: 048
     Dates: start: 20090325, end: 20090326
  2. AUGMENTIN '125' [Suspect]
     Indication: LOWER RESPIRATORY TRACT INFECTION
     Dosage: 1.2G -  IV/375 MG -TID -ORAL
     Route: 042
     Dates: start: 20090318, end: 20090322
  3. AUGMENTIN '125' [Suspect]
     Indication: LOWER RESPIRATORY TRACT INFECTION
     Dosage: 1.2G -  IV/375 MG -TID -ORAL
     Route: 042
     Dates: start: 20090323, end: 20090324
  4. FERROUS FUMARATE 280MG [Concomitant]
  5. LAMOTRIGINE [Concomitant]
  6. LANSOPRAZOLE [Concomitant]
  7. SENNA 15MG [Concomitant]
  8. ESOMEPRAZOLE [Suspect]
     Dosage: 40 MG -UNK- IV
     Route: 042
  9. KEPPRA [Suspect]
     Indication: EPILEPSY
     Dosage: 2.5G-DAILY- IV
     Route: 042

REACTIONS (9)
  - BLOOD ALKALINE PHOSPHATASE INCREASED [None]
  - BLOOD BILIRUBIN INCREASED [None]
  - DRUG INTERACTION [None]
  - DYSPHAGIA [None]
  - GAMMA-GLUTAMYLTRANSFERASE INCREASED [None]
  - IRON DEFICIENCY ANAEMIA [None]
  - JAUNDICE [None]
  - LOWER RESPIRATORY TRACT INFECTION [None]
  - OCULAR ICTERUS [None]
